FAERS Safety Report 11792476 (Version 2)
Quarter: 2016Q1

REPORT INFORMATION
  Report Type: Spontaneous
  Country: DE (occurrence: DE)
  Receive Date: 20151202
  Receipt Date: 20160115
  Transmission Date: 20160525
  Serious: Yes (Hospitalization, Disabling)
  Sender: FDA-Public Use
  Company Number: DE-009507513-1511DEU015299

PATIENT
  Age: 46 Year
  Sex: Male
  Weight: 75 kg

DRUGS (5)
  1. SIMVASTATIN. [Suspect]
     Active Substance: SIMVASTATIN
     Dosage: 20 MG, QD
     Route: 048
     Dates: start: 1995
  2. SIMVASTATIN. [Suspect]
     Active Substance: SIMVASTATIN
     Dosage: DOSE REDUCED
     Route: 048
  3. FERMED (IRON SUCROSE) [Concomitant]
     Indication: IRON DEFICIENCY ANAEMIA
     Dosage: 100 MG EVERY WEEK
     Route: 042
     Dates: start: 201505, end: 201507
  4. DEKRISTOL [Concomitant]
     Active Substance: CHOLECALCIFEROL
     Indication: VITAMIN D DEFICIENCY
     Dosage: TWO TIMES MONTHLY (DEKRISTOL 20000 IE)
     Route: 048
     Dates: start: 2012
  5. ASS 100 [Concomitant]
     Active Substance: ASPIRIN
     Indication: CORONARY ARTERY DISEASE
     Dosage: 100 MG, QD
     Route: 048
     Dates: start: 1995

REACTIONS (1)
  - Non-alcoholic steatohepatitis [Recovering/Resolving]

NARRATIVE: CASE EVENT DATE: 2013
